FAERS Safety Report 12777351 (Version 2)
Quarter: 2016Q4

REPORT INFORMATION
  Report Type: Spontaneous
  Country: JP (occurrence: JP)
  Receive Date: 20160924
  Receipt Date: 20161024
  Transmission Date: 20170207
  Serious: Yes (Death, Life-Threatening, Other)
  Sender: FDA-Public Use
  Company Number: JP-AMGEN-JPNSP2016130797

PATIENT
  Age: 57 Year
  Sex: Female
  Weight: 60 kg

DRUGS (21)
  1. VECTIBIX [Suspect]
     Active Substance: PANITUMUMAB
     Indication: METASTASES TO LIVER
     Dosage: 420 MG, Q2WK
     Route: 041
     Dates: start: 20160704, end: 20160720
  2. IRINOTECAN HYDROCHLORIDE. [Suspect]
     Active Substance: IRINOTECAN HYDROCHLORIDE
     Indication: METASTASES TO LYMPH NODES
     Dosage: UNK
     Route: 065
  3. IRINOTECAN HYDROCHLORIDE. [Suspect]
     Active Substance: IRINOTECAN HYDROCHLORIDE
     Indication: METASTASES TO LIVER
     Dosage: UNK
     Route: 065
  4. CALCIUM LEVOFOLINATE [Concomitant]
     Active Substance: LEVOLEUCOVORIN CALCIUM
     Indication: METASTASES TO LYMPH NODES
     Dosage: 330 MG, Q2WEEKS
     Route: 041
     Dates: start: 20160606, end: 20160606
  5. IRINOTECAN HYDROCHLORIDE. [Suspect]
     Active Substance: IRINOTECAN HYDROCHLORIDE
     Indication: COLON CANCER
     Dosage: 200 MG, Q2WEEKS
     Route: 041
     Dates: start: 20160720, end: 20160720
  6. 5-FU                               /00098801/ [Concomitant]
     Active Substance: FLUOROURACIL
     Indication: COLON CANCER
     Dosage: 650 MG, Q2WK
     Route: 040
     Dates: start: 20160311, end: 20160509
  7. OXALIPLATIN. [Concomitant]
     Active Substance: OXALIPLATIN
     Indication: METASTASES TO LIVER
     Dosage: 140 MG, Q2WEEKS
     Route: 041
     Dates: start: 20160704, end: 20160704
  8. LOXOPROFEN SODIUM [Concomitant]
     Active Substance: LOXOPROFEN SODIUM
     Indication: CANCER PAIN
     Dosage: 60 MG, TID
     Route: 048
     Dates: start: 20160319, end: 20160728
  9. 5-FU                               /00098801/ [Concomitant]
     Active Substance: FLUOROURACIL
     Dosage: 4000 MG, Q2WK
     Route: 040
     Dates: start: 20160704, end: 20160720
  10. 5-FU                               /00098801/ [Concomitant]
     Active Substance: FLUOROURACIL
     Dosage: 650 MG, Q2WK
     Route: 040
     Dates: start: 20160704, end: 20160720
  11. CALCIUM LEVOFOLINATE [Concomitant]
     Active Substance: LEVOLEUCOVORIN CALCIUM
     Indication: METASTASES TO LIVER
     Dosage: 330 MG, Q2WEEKS
     Route: 041
     Dates: start: 20160704, end: 20160720
  12. OXALIPLATIN. [Concomitant]
     Active Substance: OXALIPLATIN
     Indication: COLON CANCER
     Dosage: 140 MG, Q2WEEKS
     Route: 041
     Dates: start: 20160311, end: 20160509
  13. OXALIPLATIN. [Concomitant]
     Active Substance: OXALIPLATIN
     Indication: METASTASES TO LYMPH NODES
     Dosage: 140 MG, Q2WEEKS
     Route: 041
     Dates: start: 20160606, end: 20160606
  14. VECTIBIX [Suspect]
     Active Substance: PANITUMUMAB
     Indication: METASTASES TO LYMPH NODES
     Dosage: 420 MG, Q2WK
     Route: 041
     Dates: start: 20160606, end: 20160606
  15. 5-FU                               /00098801/ [Concomitant]
     Active Substance: FLUOROURACIL
     Indication: METASTASES TO LYMPH NODES
     Dosage: 4000 MG, Q2WK
     Route: 040
     Dates: start: 20160311, end: 20160509
  16. 5-FU                               /00098801/ [Concomitant]
     Active Substance: FLUOROURACIL
     Dosage: 4000 MG, Q2WK
     Route: 040
     Dates: start: 20160606, end: 20160606
  17. LANSOPRAZOLE. [Concomitant]
     Active Substance: LANSOPRAZOLE
     Indication: GASTROOESOPHAGEAL REFLUX DISEASE
     Dosage: 15 MG, QD
     Route: 048
     Dates: start: 20160319, end: 20160728
  18. VECTIBIX [Suspect]
     Active Substance: PANITUMUMAB
     Indication: COLON CANCER
     Dosage: 420 MG, Q2WK
     Route: 041
     Dates: start: 20160311, end: 20160509
  19. CALCIUM LEVOFOLINATE [Concomitant]
     Active Substance: LEVOLEUCOVORIN CALCIUM
     Indication: COLON CANCER
     Dosage: 330 MG, Q2WEEKS
     Route: 041
     Dates: start: 20160311, end: 20160509
  20. MAGNESIUM OXIDE. [Concomitant]
     Active Substance: MAGNESIUM OXIDE
     Indication: CONSTIPATION
     Dosage: 330 MG, TID
     Route: 048
     Dates: start: 20160319, end: 20160728
  21. 5-FU                               /00098801/ [Concomitant]
     Active Substance: FLUOROURACIL
     Indication: METASTASES TO LIVER
     Dosage: 650 MG, Q2WK
     Route: 040
     Dates: start: 20160606, end: 20160606

REACTIONS (7)
  - Septic shock [Fatal]
  - Febrile neutropenia [Fatal]
  - Haemoglobin decreased [Fatal]
  - Platelet count decreased [Fatal]
  - Diarrhoea [Fatal]
  - Multiple organ dysfunction syndrome [Fatal]
  - Neutrophil count decreased [Fatal]

NARRATIVE: CASE EVENT DATE: 20160729
